FAERS Safety Report 5007146-8 (Version None)
Quarter: 2006Q2

REPORT INFORMATION
  Report Type: 
  Country: None (occurrence: None)
  Receive Date: 20060519
  Receipt Date: 20060516
  Transmission Date: 20061013
  Serious: Yes (Other)
  Sender: FDA-Public Use
  Company Number: ES-MERCK-0605ESP00021

PATIENT
  Age: 57 Year
  Sex: Female

DRUGS (7)
  1. CANCIDAS [Suspect]
     Indication: URINARY TRACT INFECTION FUNGAL
     Route: 041
     Dates: start: 20060511, end: 20060511
  2. CANCIDAS [Suspect]
     Route: 041
     Dates: start: 20060512, end: 20060515
  3. CANCIDAS [Suspect]
     Route: 041
     Dates: start: 20060516, end: 20060517
  4. CANCIDAS [Suspect]
     Indication: BLOOD CULTURE NEGATIVE
     Route: 041
     Dates: start: 20060511, end: 20060511
  5. CANCIDAS [Suspect]
     Route: 041
     Dates: start: 20060512, end: 20060515
  6. CANCIDAS [Suspect]
     Route: 041
     Dates: start: 20060516, end: 20060517
  7. [THERAPY UNSPECIFIED] [Concomitant]
     Route: 065

REACTIONS (1)
  - HYPOCOAGULABLE STATE [None]
